FAERS Safety Report 14794572 (Version 1)
Quarter: 2018Q2

REPORT INFORMATION
  Report Type: Spontaneous
  Country: FR (occurrence: FR)
  Receive Date: 20180423
  Receipt Date: 20180423
  Transmission Date: 20180711
  Serious: Yes (Hospitalization, Other)
  Sender: FDA-Public Use
  Company Number: FR-RARE DISEASE THERAPEUTICS, INC.-2046301

PATIENT
  Sex: Female

DRUGS (24)
  1. PURIXAN [Suspect]
     Active Substance: MERCAPTOPURINE
     Indication: ACUTE LYMPHOCYTIC LEUKAEMIA
     Route: 048
     Dates: start: 20180305
  2. MORPHINE [Concomitant]
     Active Substance: MORPHINE
  3. TEICOPLANIN [Concomitant]
     Active Substance: TEICOPLANIN
  4. CEFTAZIDIME. [Concomitant]
     Active Substance: CEFTAZIDIME
  5. ALBUMIN [Concomitant]
     Active Substance: ALBUMIN HUMAN
  6. PARACETAMOL [Concomitant]
     Active Substance: ACETAMINOPHEN
  7. ANTITHROMBIN III [Suspect]
     Active Substance: ANTITHROMBIN III HUMAN
  8. HYDROCORTISONE. [Suspect]
     Active Substance: HYDROCORTISONE
     Route: 037
     Dates: start: 20180205, end: 20180307
  9. TRAMADOL. [Concomitant]
     Active Substance: TRAMADOL
  10. SULFAMETHOXAZOLE AND TRIMETHOPRIM [Concomitant]
     Active Substance: SULFAMETHOXAZOLE\TRIMETHOPRIM
  11. RACECADOTRIL [Concomitant]
     Active Substance: RACECADOTRIL
  12. METHOTREXATE. [Suspect]
     Active Substance: METHOTREXATE
     Route: 037
     Dates: start: 20180205, end: 20180307
  13. CYTARABINE. [Suspect]
     Active Substance: CYTARABINE
     Route: 037
     Dates: start: 20180205, end: 20180307
  14. CHOLECALCIFEROL [Concomitant]
     Active Substance: CHOLECALCIFEROL
  15. PEGASPARGASE [Suspect]
     Active Substance: PEGASPARGASE
     Route: 042
     Dates: start: 20180205, end: 20180205
  16. POVIDONE-IODINE. [Concomitant]
     Active Substance: POVIDONE-IODINE
  17. FUROSEMIDE. [Concomitant]
     Active Substance: FUROSEMIDE
  18. MACROGOL [Concomitant]
     Active Substance: POLYETHYLENE GLYCOLS
  19. NYSTATIN. [Concomitant]
     Active Substance: NYSTATIN
  20. CYTARABINE. [Suspect]
     Active Substance: CYTARABINE
     Route: 042
     Dates: start: 20180307, end: 20180317
  21. ONDANSETRON [Concomitant]
     Active Substance: ONDANSETRON
  22. SULFAMETHOXAZOLE AND TRIMETHOPRIM [Concomitant]
     Active Substance: SULFAMETHOXAZOLE\TRIMETHOPRIM
  23. AMPHOTERICIN B. [Concomitant]
     Active Substance: AMPHOTERICIN B
  24. MITOSYL [Concomitant]

REACTIONS (2)
  - Infusion site extravasation [Not Recovered/Not Resolved]
  - Febrile bone marrow aplasia [Not Recovered/Not Resolved]

NARRATIVE: CASE EVENT DATE: 20180319
